FAERS Safety Report 6307749-4 (Version None)
Quarter: 2009Q3

REPORT INFORMATION
  Report Type: 
  Country: None (occurrence: None)
  Receive Date: 20090813
  Receipt Date: 20090810
  Transmission Date: 20100115
  Serious: Yes (Hospitalization)
  Sender: FDA-Public Use
  Company Number: JP-EISAI INC.-E3810-03055-SPO-JP

PATIENT
  Age: 81 Year
  Sex: Female

DRUGS (1)
  1. PARIET (RABEPRAZOLE) [Suspect]
     Indication: REFLUX OESOPHAGITIS
     Route: 048
     Dates: start: 20090501, end: 20090724

REACTIONS (2)
  - GRANULOCYTOPENIA [None]
  - PANCYTOPENIA [None]
